FAERS Safety Report 20134633 (Version 1)
Quarter: 2021Q4

REPORT INFORMATION
  Report Type: Spontaneous
  Country: US (occurrence: US)
  Receive Date: 20211201
  Receipt Date: 20211201
  Transmission Date: 20220303
  Serious: Yes (Hospitalization)
  Sender: FDA-Public Use
  Company Number: US-LOTUS-2021-LOTUS-048370

PATIENT
  Age: 46 Year
  Sex: Female

DRUGS (4)
  1. METHOTREXATE [Suspect]
     Active Substance: METHOTREXATE
     Indication: Leukaemia
     Dosage: 10-15 MG
  2. HYDROXYUREA [Suspect]
     Active Substance: HYDROXYUREA
     Indication: Leukaemia
  3. DAUNORUBICIN [Suspect]
     Active Substance: DAUNORUBICIN
     Indication: Leukaemia
  4. CYTARABINE [Suspect]
     Active Substance: CYTARABINE
     Indication: Leukaemia

REACTIONS (4)
  - Angiokeratoma [Recovered/Resolved]
  - Purpura [Recovered/Resolved]
  - Palmar erythema [Recovered/Resolved]
  - Palmoplantar keratoderma [Recovered/Resolved]
